FAERS Safety Report 12987750 (Version 1)
Quarter: 2016Q4

REPORT INFORMATION
  Report Type: Spontaneous
  Country: US (occurrence: US)
  Receive Date: 20161130
  Receipt Date: 20161130
  Transmission Date: 20170207
  Serious: Yes (Other)
  Sender: FDA-Public Use
  Company Number: None

PATIENT
  Age: 66 Year
  Sex: Male
  Weight: 76.2 kg

DRUGS (3)
  1. FISH OIL [Concomitant]
     Active Substance: FISH OIL
  2. MOMETASONE [Concomitant]
     Active Substance: MOMETASONE
  3. ATORVASTATIN 40 GRAM TABLET/ FOR LIPITOR [Suspect]
     Active Substance: ATORVASTATIN
     Indication: PROPHYLAXIS
     Dosage: ?          QUANTITY:1 7746257;?
     Route: 048
     Dates: start: 20161102

REACTIONS (1)
  - Hypersensitivity [None]

NARRATIVE: CASE EVENT DATE: 20161106
